FAERS Safety Report 8013784-0 (Version None)
Quarter: 2011Q4

REPORT INFORMATION
  Report Type: 
  Country: None (occurrence: None)
  Receive Date: 20111229
  Receipt Date: 20111216
  Transmission Date: 20120403
  Serious: Yes (Hospitalization, Other)
  Sender: FDA-Public Use
  Company Number: FR-PFIZER INC-2011314706

PATIENT
  Age: 61 Year
  Sex: Female

DRUGS (10)
  1. ASPIRIN [Concomitant]
     Dosage: UNK
  2. POTASSIUM CHLORIDE [Concomitant]
     Dosage: UNK
  3. ATORVASTATIN CALCIUM [Concomitant]
     Dosage: UNK
  4. BROMAZEPAM [Concomitant]
     Dosage: UNK
  5. ALDACTONE [Concomitant]
     Dosage: UNK
  6. RAMIPRIL [Suspect]
     Dosage: 10 MG, DAILY
     Route: 048
  7. LASIX [Concomitant]
     Dosage: UNK
  8. PAROXETINE HCL [Concomitant]
     Dosage: UNK
  9. HUMALOG [Concomitant]
     Dosage: UNK
  10. BISOPROLOL FUMARATE [Concomitant]
     Dosage: UNK

REACTIONS (6)
  - DYSPNOEA [None]
  - BLOOD PRESSURE INCREASED [None]
  - HYPOGLYCAEMIA [None]
  - COUGH [None]
  - OXYGEN SATURATION DECREASED [None]
  - HEART RATE INCREASED [None]
